FAERS Safety Report 6016493-2 (Version None)
Quarter: 2008Q4

REPORT INFORMATION
  Report Type: 
  Country: None (occurrence: None)
  Receive Date: 20081222
  Receipt Date: 20081211
  Transmission Date: 20090506
  Serious: Yes (Other)
  Sender: FDA-Public Use
  Company Number: JP-SANOFI-SYNTHELABO-A01200816052

PATIENT
  Sex: Female
  Weight: 59 kg

DRUGS (5)
  1. ISOVORIN [Concomitant]
     Dosage: 201.3 MG/M2
     Route: 041
     Dates: start: 20080305, end: 20080507
  2. FLUOROURACIL [Concomitant]
     Dosage: 369.1 MG/M2
     Route: 040
     Dates: start: 20080305, end: 20080507
  3. FLUOROURACIL [Concomitant]
     Dosage: 2349MG/M2 ON DAY 1-2
     Route: 041
     Dates: start: 20080305, end: 20080507
  4. ELPLAT [Suspect]
     Indication: COLON CANCER
     Dosage: 83.9 MG/M2
     Route: 041
     Dates: start: 20080305, end: 20080507
  5. AVASTIN [Concomitant]
     Route: 042
     Dates: start: 20080402, end: 20080507

REACTIONS (2)
  - GASTROINTESTINAL PERFORATION [None]
  - WHITE BLOOD CELL COUNT DECREASED [None]
